FAERS Safety Report 8839711 (Version 1)
Quarter: 2012Q4

REPORT INFORMATION
  Report Type: 
  Country: US (occurrence: US)
  Receive Date: 20121015
  Receipt Date: 20121015
  Transmission Date: 20130627
  Serious: Yes (Hospitalization)
  Sender: FDA-Public Use
  Company Number: US-B.I. PHARMACEUTICALS,INC./RIDGEFIELD-2012-BP-24924BP

PATIENT
  Age: 63 None
  Sex: Female
  Weight: 95 kg

DRUGS (2)
  1. DULCOLAX TABLETS [Suspect]
     Indication: CONSTIPATION
     Dosage: 10 mg
     Route: 048
     Dates: start: 201205, end: 201209
  2. DULCOLAX TABLETS [Suspect]
     Dosage: 5 mg
     Route: 048
     Dates: start: 201209

REACTIONS (2)
  - Pain in extremity [Recovered/Resolved]
  - Constipation [Not Recovered/Not Resolved]
